FAERS Safety Report 8217328-X (Version None)
Quarter: 2012Q1

REPORT INFORMATION
  Report Type: 
  Country: None (occurrence: None)
  Receive Date: 20120319
  Receipt Date: 20120309
  Transmission Date: 20120608
  Serious: Yes (Other)
  Sender: FDA-Public Use
  Company Number: US-BAYER-2011-050648

PATIENT
  Age: 88 Year
  Sex: Male

DRUGS (3)
  1. NEXAVAR [Suspect]
     Indication: PROSTATE CANCER
     Dosage: 200 MG, BID
     Route: 048
     Dates: start: 20100928
  2. COUMADIN [Concomitant]
  3. NEXAVAR [Suspect]
     Dosage: SLOWED DOWN

REACTIONS (3)
  - MOUTH HAEMORRHAGE [None]
  - ILL-DEFINED DISORDER [None]
  - MALAISE [None]
